FAERS Safety Report 9359298 (Version 1)
Quarter: 2013Q2

REPORT INFORMATION
  Report Type: Spontaneous
  Country: US (occurrence: US)
  Receive Date: 20130620
  Receipt Date: 20130620
  Transmission Date: 20140414
  Serious: Yes (Other)
  Sender: FDA-Public Use
  Company Number: CHPA2013US010037

PATIENT
  Age: 82 Year
  Sex: Male

DRUGS (2)
  1. NODOZ [Suspect]
     Indication: SOMNOLENCE
     Dosage: UNK, UNK
     Route: 048
  2. VIVARIN [Concomitant]
     Indication: SOMNOLENCE
     Dosage: UNK, UNK

REACTIONS (5)
  - Myocardial infarction [Recovered/Resolved]
  - Diverticulitis [Recovering/Resolving]
  - Arthritis [Not Recovered/Not Resolved]
  - Joint injury [Not Recovered/Not Resolved]
  - Hypometabolism [Not Recovered/Not Resolved]
